FAERS Safety Report 10062745 (Version 3)
Quarter: 2016Q2

REPORT INFORMATION
  Report Type: Report from Study
  Country: HU (occurrence: HU)
  Receive Date: 20140407
  Receipt Date: 20160530
  Transmission Date: 20160815
  Serious: Yes (Other)
  Sender: FDA-Public Use
  Company Number: HU-JNJFOC-20131010590

PATIENT
  Age: 60 Year
  Sex: Male

DRUGS (2)
  1. STELARA [Suspect]
     Active Substance: USTEKINUMAB
     Indication: PSORIASIS
     Route: 058
  2. STELARA [Suspect]
     Active Substance: USTEKINUMAB
     Indication: PSORIASIS
     Route: 058
     Dates: start: 20111207, end: 20131026

REACTIONS (10)
  - Pharyngeal disorder [Unknown]
  - Back pain [Unknown]
  - Pneumonia [Recovered/Resolved]
  - Blood glucose increased [Unknown]
  - Arthralgia [Unknown]
  - Therapeutic response decreased [Unknown]
  - Nasopharyngitis [Unknown]
  - Choking [Recovered/Resolved]
  - Oropharyngeal pain [Unknown]
  - Cough [Unknown]

NARRATIVE: CASE EVENT DATE: 20130916
